FAERS Safety Report 4604676-5 (Version None)
Quarter: 2005Q2

REPORT INFORMATION
  Report Type: 
  Country: None (occurrence: None)
  Receive Date: 20050223
  Receipt Date: 20041112
  Transmission Date: 20051028
  Serious: No
  Sender: FDA-Public Use
  Company Number: PHEH2004US12251

PATIENT
  Age: 26 Year
  Sex: Female

DRUGS (2)
  1. ZELNORM [Suspect]
     Indication: CONSTIPATION
     Dosage: 6 MG, BID, ORAL
     Route: 048
     Dates: start: 20041111, end: 20041111
  2. YASMIN (DIROSPIRENONE, ETHINYLESTRADIOL) [Concomitant]

REACTIONS (3)
  - HEADACHE [None]
  - HYPOAESTHESIA [None]
  - PRURITUS [None]
